FAERS Safety Report 5136645-3 (Version None)
Quarter: 2006Q4

REPORT INFORMATION
  Report Type: 
  Country: None (occurrence: None)
  Receive Date: 20061023
  Receipt Date: 20061010
  Transmission Date: 20070319
  Serious: Yes (Other)
  Sender: FDA-Public Use
  Company Number: 2006125317

PATIENT
  Sex: Female

DRUGS (4)
  1. CELEBREX [Suspect]
     Dates: start: 20060101
  2. LYRICA [Suspect]
     Dates: start: 20061009
  3. PREVACID [Concomitant]
  4. LORAZEPAM [Concomitant]

REACTIONS (3)
  - FOOT OPERATION [None]
  - PAIN [None]
  - SOMNOLENCE [None]
